FAERS Safety Report 7635465-5 (Version None)
Quarter: 2011Q3

REPORT INFORMATION
  Report Type: 
  Country: None (occurrence: None)
  Receive Date: 20110726
  Receipt Date: 20110726
  Transmission Date: 20111222
  Serious: Yes (Hospitalization)
  Sender: FDA-Public Use
  Company Number: None

PATIENT
  Age: 55 Year
  Sex: Female
  Weight: 104.32 kg

DRUGS (1)
  1. OMNIPAQUE 350 [Suspect]
     Indication: SCAN WITH CONTRAST
     Dates: start: 20110607, end: 20110607

REACTIONS (3)
  - DIZZINESS [None]
  - PRURITUS [None]
  - NAUSEA [None]
